FAERS Safety Report 6530725-3 (Version None)
Quarter: 2010Q1

REPORT INFORMATION
  Report Type: 
  Country: None (occurrence: None)
  Receive Date: 20100108
  Receipt Date: 20081216
  Transmission Date: 20100710
  Serious: No
  Sender: FDA-Public Use
  Company Number: A0760914A

PATIENT
  Age: 49 Year
  Sex: Male

DRUGS (1)
  1. LOVAZA [Suspect]
     Dosage: 2CAP TWICE PER DAY
     Route: 048
     Dates: end: 20081213

REACTIONS (1)
  - BLOOD CHOLESTEROL INCREASED [None]
